FAERS Safety Report 4576342-6 (Version None)
Quarter: 2005Q1

REPORT INFORMATION
  Report Type: 
  Country: None (occurrence: None)
  Receive Date: 20050207
  Receipt Date: 20050124
  Transmission Date: 20050727
  Serious: Yes (Hospitalization, Other)
  Sender: FDA-Public Use
  Company Number: HQWYE520711JAN05

PATIENT
  Sex: Male

DRUGS (1)
  1. CHILDREN'S ADVIL [Suspect]
     Indication: PYREXIA
     Dosage: ONCE, ORAL
     Route: 048
     Dates: start: 20041206, end: 20041206

REACTIONS (5)
  - ABSCESS [None]
  - C-REACTIVE PROTEIN INCREASED [None]
  - CELLULITIS [None]
  - VARICELLA [None]
  - WHITE BLOOD CELL COUNT DECREASED [None]
